FAERS Safety Report 4399843-2 (Version None)
Quarter: 2004Q3

REPORT INFORMATION
  Report Type: 
  Country: None (occurrence: None)
  Receive Date: 20040714
  Receipt Date: 20040625
  Transmission Date: 20050211
  Serious: Yes (Other)
  Sender: FDA-Public Use
  Company Number: M2004.0748

PATIENT
  Age: 65 Year
  Sex: Female

DRUGS (3)
  1. RIMACTANE [Suspect]
     Indication: LYMPH NODE TUBERCULOSIS
     Dosage: 450 MG QD
     Dates: start: 20030220
  2. ISONIAZID STREPTOMYCIN SULFTE [Suspect]
     Indication: LYMPH NODE TUBERCULOSIS
     Dosage: 300 MG QD
     Dates: start: 20030220
  3. STREPTOMYCIN SULFATE [Suspect]
     Indication: LYMPH NODE TUBERCULOSIS
     Dates: start: 20030220

REACTIONS (3)
  - CEREBRAL INFARCTION [None]
  - CONVULSION [None]
  - DEPRESSED LEVEL OF CONSCIOUSNESS [None]
